FAERS Safety Report 16837457 (Version 2)
Quarter: 2019Q4

REPORT INFORMATION
  Report Type: Spontaneous
  Country: US (occurrence: US)
  Receive Date: 20190923
  Receipt Date: 20191018
  Transmission Date: 20200122
  Serious: No
  Sender: FDA-Public Use
  Company Number: US-ASTRAZENECA-2019SF31151

PATIENT
  Sex: Male
  Weight: 106.6 kg

DRUGS (3)
  1. ASPIRIN. [Concomitant]
     Active Substance: ASPIRIN
  2. BYDUREON [Suspect]
     Active Substance: EXENATIDE
     Indication: TYPE 2 DIABETES MELLITUS
     Route: 065
  3. BYDUREON BCISE [Suspect]
     Active Substance: EXENATIDE
     Indication: TYPE 2 DIABETES MELLITUS
     Route: 065
     Dates: start: 20190911

REACTIONS (4)
  - Injection site pain [Unknown]
  - Incorrect dose administered by device [Unknown]
  - Device issue [Unknown]
  - Injection site haemorrhage [Unknown]
